FAERS Safety Report 5297460-3 (Version None)
Quarter: 2007Q2

REPORT INFORMATION
  Report Type: 
  Country: None (occurrence: None)
  Receive Date: 20070416
  Receipt Date: 20061115
  Transmission Date: 20071010
  Serious: No
  Sender: FDA-Public Use
  Company Number: US-GLAXOSMITHKLINE-A0627686A

PATIENT
  Sex: Female

DRUGS (2)
  1. COMPAZINE [Suspect]
     Indication: NAUSEA
     Route: 048
  2. PREVACID [Concomitant]

REACTIONS (1)
  - DRUG INEFFECTIVE [None]
